FAERS Safety Report 9369390 (Version 1)
Quarter: 2013Q2

REPORT INFORMATION
  Report Type: Spontaneous
  Country: FR (occurrence: FR)
  Receive Date: 20130626
  Receipt Date: 20130626
  Transmission Date: 20140414
  Serious: Yes (Disabling)
  Sender: FDA-Public Use
  Company Number: FR-SANOFI-AVENTIS-2013SA062549

PATIENT
  Age: 66 Year
  Sex: Female

DRUGS (9)
  1. LOVENOX [Suspect]
     Indication: PRODUCT USED FOR UNKNOWN INDICATION
     Route: 058
     Dates: start: 20130416, end: 20130421
  2. DIFFU K [Suspect]
     Indication: PRODUCT USED FOR UNKNOWN INDICATION
     Route: 048
     Dates: start: 20130418, end: 20130422
  3. AMOXICILLIN [Suspect]
     Indication: PNEUMONIA
     Route: 042
     Dates: start: 20130416, end: 20130419
  4. CLAMOXYL [Suspect]
     Indication: PNEUMONIA
     Route: 048
     Dates: start: 20130419, end: 20130426
  5. RIVOTRIL [Concomitant]
     Dosage: START DATE: LONG STANDING THERAPY
  6. EPITOMAX [Concomitant]
     Dosage: START DATE: LONG STANDING THERAPY
  7. RELPAX [Concomitant]
     Dosage: START DATE: LONG STANDING THERAPY
  8. RIZATRIPTAN [Concomitant]
     Dosage: START DATE: LONG STANDING THERAPY; DRUG REPORTED AS MAXALT LYOC
  9. MODURETIC [Concomitant]
     Dosage: START DATE: LONG STANDING THERAPY

REACTIONS (1)
  - Deafness bilateral [Recovering/Resolving]
